FAERS Safety Report 9049753 (Version 1)
Quarter: 2013Q1

REPORT INFORMATION
  Report Type: Spontaneous
  Country: GB (occurrence: GB)
  Receive Date: 20130205
  Receipt Date: 20130205
  Transmission Date: 20140127
  Serious: Yes (Hospitalization, Other)
  Sender: FDA-Public Use
  Company Number: GB-ROCHE-1148160

PATIENT
  Sex: Male

DRUGS (20)
  1. XOLAIR [Suspect]
     Indication: PRODUCT USED FOR UNKNOWN INDICATION
     Route: 058
  2. VORICONAZOLE [Suspect]
     Indication: PRODUCT USED FOR UNKNOWN INDICATION
     Route: 048
     Dates: end: 20121016
  3. FERROUS SULPHATE [Concomitant]
  4. HYDROCORTISONE [Concomitant]
  5. LEVOCETIRIZINE [Concomitant]
  6. MAGNESIUM GLYCEROPHOSPHATE [Concomitant]
  7. MOVICOL [Concomitant]
  8. OMEPRAZOLE [Concomitant]
  9. PHYTOMENADIONE [Concomitant]
  10. POTASSIUM CHLORIDE [Concomitant]
  11. RISEDRONATE [Concomitant]
  12. SALBUTAMOL [Concomitant]
  13. SODIUM CHLORIDE [Concomitant]
  14. SYMBICORT [Concomitant]
  15. TRANEXAMIC ACID [Concomitant]
  16. DORNASE ALFA [Concomitant]
  17. COLISTIMETHATE SODIUM [Concomitant]
  18. AZITHROMYCIN [Concomitant]
  19. BUDESONIDE [Concomitant]
  20. CALCICHEW D3 FORTE [Concomitant]

REACTIONS (3)
  - Jaundice cholestatic [Unknown]
  - Liver function test abnormal [Recovered/Resolved]
  - Vomiting [Recovered/Resolved]
